FAERS Safety Report 5906634-7 (Version None)
Quarter: 2008Q4

REPORT INFORMATION
  Report Type: 
  Country: None (occurrence: None)
  Receive Date: 20081002
  Receipt Date: 20080919
  Transmission Date: 20090506
  Serious: Yes (Other)
  Sender: FDA-Public Use
  Company Number: US-ELI_LILLY_AND_COMPANY-US200809004559

PATIENT
  Age: 83 Year
  Sex: Female
  Weight: 46.712 kg

DRUGS (4)
  1. FORTEO [Suspect]
     Indication: OSTEOPOROSIS
     Dosage: UNK, UNK
     Dates: start: 20080501
  2. LIPITOR [Concomitant]
     Indication: BLOOD CHOLESTEROL
  3. INDERAL [Concomitant]
     Indication: MIGRAINE
  4. DARVOCET [Concomitant]
     Indication: PAIN

REACTIONS (7)
  - AORTIC DISORDER [None]
  - DRY MOUTH [None]
  - EATING DISORDER [None]
  - MALAISE [None]
  - NAUSEA [None]
  - OBSTRUCTION [None]
  - WEIGHT DECREASED [None]
